FAERS Safety Report 9278525 (Version 1)
Quarter: 2013Q2

REPORT INFORMATION
  Report Type: Spontaneous
  Country: US (occurrence: US)
  Receive Date: 20130508
  Receipt Date: 20130508
  Transmission Date: 20140414
  Serious: No
  Sender: FDA-Public Use
  Company Number: US-BAUSCH-BL-2012-000280

PATIENT
  Age: 29 Year
  Sex: Female

DRUGS (3)
  1. OFLOXACIN OTIC SOLUTION 0.3% [Suspect]
     Indication: GLAUCOMA SURGERY
     Dosage: 1 DROP IN RIGHT EYE, FOUR TIMES PER DAY
     Route: 047
     Dates: start: 20120719, end: 20120727
  2. DEXAMETHASONE [Concomitant]
  3. DIFLUPREDNATE [Concomitant]

REACTIONS (4)
  - Drug dispensing error [Unknown]
  - Wrong drug administered [Unknown]
  - Eye irritation [Recovered/Resolved]
  - Headache [Recovered/Resolved]
